FAERS Safety Report 9691570 (Version 2)
Quarter: 2013Q4

REPORT INFORMATION
  Report Type: Spontaneous
  Country: US (occurrence: US)
  Receive Date: 20131115
  Receipt Date: 20131216
  Transmission Date: 20140711
  Serious: Yes (Other)
  Sender: FDA-Public Use
  Company Number: US-ROCHE-1303943

PATIENT
  Age: 36 Year
  Sex: Female
  Weight: 112.59 kg

DRUGS (6)
  1. XOLAIR [Suspect]
     Indication: ASTHMA
     Dosage: RECENT INJECTION:16-OCT-2013
     Route: 058
  2. EPIPEN [Concomitant]
  3. ALBUTEROL SULFATE [Concomitant]
  4. BUDESONIDE [Concomitant]
     Dosage: DOSE: 0.5 MG / 2 ML
     Route: 065
     Dates: start: 20130522
  5. EPIPEN 2-PAK [Concomitant]
     Dosage: 0.3 MG/0.3 ML
     Route: 030
     Dates: start: 20130207
  6. VENTOLIN [Concomitant]
     Dosage: 2 PUFFS
     Route: 065

REACTIONS (15)
  - Throat tightness [Unknown]
  - Speech disorder [Unknown]
  - Vomiting [Unknown]
  - Stridor [Unknown]
  - Dyspnoea [Unknown]
  - Pharyngeal oedema [Unknown]
  - Drooling [Unknown]
  - Chest pain [Unknown]
  - Cough [Unknown]
  - Chest discomfort [Unknown]
  - Fatigue [Unknown]
  - Exercise tolerance decreased [Unknown]
  - Wheezing [Unknown]
  - Asthma [Unknown]
  - Rhinitis allergic [Unknown]
